FAERS Safety Report 10917895 (Version 1)
Quarter: 2015Q1

REPORT INFORMATION
  Report Type: Spontaneous
  Country: PL (occurrence: PL)
  Receive Date: 20150316
  Receipt Date: 20150316
  Transmission Date: 20150721
  Serious: Yes (Other)
  Sender: FDA-Public Use
  Company Number: PL-BRISTOL-MYERS SQUIBB COMPANY-BMS-2015-014583

PATIENT
  Age: 65 Year
  Sex: Male

DRUGS (2)
  1. BARACLUDE [Suspect]
     Active Substance: ENTECAVIR
     Indication: HEPATITIS B
     Dosage: UNK
     Route: 065
     Dates: start: 20130809, end: 20140712
  2. CYCLOPHOSPHAMIDE W/PREDNISONE/VINCRISTINE [Concomitant]
     Indication: LYMPHOMA
     Dosage: UNK
     Route: 065
     Dates: start: 20130726, end: 201401

REACTIONS (1)
  - Thrombocytopenia [Unknown]
